FAERS Safety Report 5385897-3 (Version None)
Quarter: 2007Q3

REPORT INFORMATION
  Report Type: 
  Country: None (occurrence: None)
  Receive Date: 20070712
  Receipt Date: 20070702
  Transmission Date: 20080115
  Serious: Yes (Hospitalization)
  Sender: FDA-Public Use
  Company Number: US-GILEAD-2007-0012588

PATIENT
  Sex: Male
  Weight: 85.6 kg

DRUGS (11)
  1. AMBRISENTAN [Suspect]
     Indication: PULMONARY HYPERTENSION
     Route: 048
     Dates: start: 20070309
  2. DIGOXIN [Concomitant]
     Indication: PULMONARY HYPERTENSION
     Route: 048
     Dates: start: 19920101
  3. ALBUTEROL [Concomitant]
     Indication: DYSPNOEA
     Dates: start: 20070216
  4. WARFARIN SODIUM [Concomitant]
     Indication: PULMONARY HYPERTENSION
     Route: 048
     Dates: start: 20070501
  5. WARFARIN SODIUM [Concomitant]
     Route: 048
     Dates: start: 20070501
  6. POTASSIUM CHLORIDE [Concomitant]
     Indication: PROPHYLAXIS
     Dates: start: 20070603
  7. POTASSIUM CHLORIDE [Concomitant]
     Dates: start: 20070528, end: 20070602
  8. OXYGEN [Concomitant]
     Indication: PULMONARY HYPERTENSION
     Dates: start: 20070501
  9. FUROSEMIDE [Concomitant]
     Indication: FLUID RETENTION
     Route: 048
     Dates: start: 20070525, end: 20070612
  10. FUROSEMIDE [Concomitant]
     Indication: PULMONARY HYPERTENSION
     Dates: start: 19920101, end: 20070525
  11. LANSOPRAZOLE [Concomitant]
     Route: 048
     Dates: start: 20070531, end: 20070602

REACTIONS (2)
  - HYPERVOLAEMIA [None]
  - RIGHT VENTRICULAR FAILURE [None]
